FAERS Safety Report 7657527-9 (Version None)
Quarter: 2011Q3

REPORT INFORMATION
  Report Type: 
  Country: None (occurrence: None)
  Receive Date: 20110804
  Receipt Date: 20110726
  Transmission Date: 20111222
  Serious: Yes (Hospitalization)
  Sender: FDA-Public Use
  Company Number: IN-AMGEN-INDCT2011022974

PATIENT
  Age: 45 Year
  Sex: Male
  Weight: 61 kg

DRUGS (8)
  1. LASILACTONE [Concomitant]
     Indication: PLEURAL EFFUSION
     Route: 048
     Dates: start: 20110101
  2. ALLEGRA [Concomitant]
     Indication: RASH
     Route: 048
     Dates: start: 20110405
  3. SPASMO-PROXYVON [Concomitant]
     Route: 048
     Dates: start: 20110419
  4. PANITUMUMAB [Suspect]
     Indication: COLORECTAL CANCER METASTATIC
     Dosage: 366 MG, UNK
     Dates: start: 20110322
  5. PANTOPRAZOLE [Concomitant]
     Indication: GASTRITIS
     Route: 048
     Dates: start: 20110101
  6. MULTI-VITAMINS [Concomitant]
     Indication: MEDICAL DIET
     Route: 048
     Dates: start: 20110101
  7. PROTEIN SUPPLEMENTS [Concomitant]
     Indication: MEDICAL DIET
     Route: 048
     Dates: start: 20110322
  8. SPASMO-PROXYVON [Concomitant]
     Indication: ABDOMINAL PAIN
     Route: 048
     Dates: start: 20110419

REACTIONS (1)
  - GASTROENTERITIS [None]
